FAERS Safety Report 9170796 (Version 1)
Quarter: 2013Q1

REPORT INFORMATION
  Report Type: Spontaneous
  Country: US (occurrence: None)
  Receive Date: 20130315
  Receipt Date: 20130315
  Transmission Date: 20140127
  Serious: Yes (Death, Hospitalization)
  Sender: FDA-Public Use
  Company Number: None

PATIENT
  Age: 68 Year
  Sex: Female
  Weight: 63.5 kg

DRUGS (2)
  1. OXALIPLATIN [Suspect]
     Indication: PANCREATIC CARCINOMA
     Dosage: Q2WEEKS
     Route: 042
     Dates: start: 20090916
  2. IRINOTECAN [Concomitant]

REACTIONS (3)
  - Bacteraemia [None]
  - Cerebrovascular accident [None]
  - Cerebral infarction [None]
